FAERS Safety Report 15451202 (Version 7)
Quarter: 2021Q1

REPORT INFORMATION
  Report Type: Spontaneous
  Country: US (occurrence: US)
  Receive Date: 20181001
  Receipt Date: 20210106
  Transmission Date: 20210419
  Serious: Yes (Hospitalization, Other)
  Sender: FDA-Public Use
  Company Number: US-PFIZER INC-2018391170

PATIENT
  Age: 72 Year
  Sex: Female
  Weight: 89 kg

DRUGS (10)
  1. CYMBALTA [Concomitant]
     Active Substance: DULOXETINE HYDROCHLORIDE
     Dosage: 60 MG, UNK
  2. FIORICET [Concomitant]
     Active Substance: ACETAMINOPHEN\BUTALBITAL\CAFFEINE
     Dosage: UNK [[BUTALBITAL: 50/ACETAMINOPHEN: 325/CAFFEINE:40]]
     Dates: start: 1990
  3. LORAZEPAM. [Concomitant]
     Active Substance: LORAZEPAM
     Dosage: UNK [0.5]
     Dates: start: 2015
  4. LYRICA [Suspect]
     Active Substance: PREGABALIN
     Indication: FIBROMYALGIA
     Dosage: 50 MG, 2X/DAY [50MG IN THE MORNING AND 50MG AT NIGHT]
  5. LISINOPRIL. [Concomitant]
     Active Substance: LISINOPRIL
     Dosage: 40 MG, UNK
     Dates: start: 201809
  6. LYRICA [Suspect]
     Active Substance: PREGABALIN
     Dosage: 150 MG, 2X/DAY [150MG IN THE MORNING AND 150MG AT NIGHT]
     Dates: start: 2020
  7. LYRICA [Suspect]
     Active Substance: PREGABALIN
     Indication: NEURALGIA
     Dosage: 150 MG, 1X/DAY
  8. LYRICA [Suspect]
     Active Substance: PREGABALIN
     Dosage: 100 MG, 2X/DAY [TWO 50MG CAPSULES IN THE MORNING AND TWO 50MG CAPSULES AT NIGHT]
  9. ESTRADIOL. [Concomitant]
     Active Substance: ESTRADIOL
     Dosage: UNK [0.5]
     Dates: start: 1995
  10. LYRICA [Suspect]
     Active Substance: PREGABALIN
     Dosage: 200 MG, DAILY [FOUR 50MG CAPSULES PER DAY]
     Dates: start: 2020, end: 2020

REACTIONS (4)
  - Neoplasm malignant [Not Recovered/Not Resolved]
  - Stress [Not Recovered/Not Resolved]
  - Oedema [Unknown]
  - Therapeutic product effect incomplete [Unknown]
